FAERS Safety Report 13594547 (Version 4)
Quarter: 2019Q3

REPORT INFORMATION
  Report Type: Spontaneous
  Country: IE (occurrence: IE)
  Receive Date: 20170530
  Receipt Date: 20190731
  Transmission Date: 20191004
  Serious: Yes (Disabling, Congenital Anomaly, Other)
  Sender: FDA-Public Use
  Company Number: IE-ABBVIE-17P-229-1991243-00

PATIENT
  Sex: Female

DRUGS (1)
  1. EPILIM [Suspect]
     Active Substance: VALPROATE SODIUM
     Indication: MATERNAL EXPOSURE TIMING UNSPECIFIED
     Route: 064

REACTIONS (15)
  - Fatigue [Not Recovered/Not Resolved]
  - Foetal exposure during pregnancy [Unknown]
  - Bone disorder [Not Recovered/Not Resolved]
  - Coordination abnormal [Not Recovered/Not Resolved]
  - Epilepsy [Not Recovered/Not Resolved]
  - Marfan^s syndrome [Not Recovered/Not Resolved]
  - Anxiety [Not Recovered/Not Resolved]
  - Foetal anticonvulsant syndrome [Not Recovered/Not Resolved]
  - Ehlers-Danlos syndrome [Not Recovered/Not Resolved]
  - Sensory level abnormal [Not Recovered/Not Resolved]
  - Abnormal behaviour [Not Recovered/Not Resolved]
  - Social (pragmatic) communication disorder [Not Recovered/Not Resolved]
  - Autism spectrum disorder [Not Recovered/Not Resolved]
  - Osteogenesis imperfecta [Not Recovered/Not Resolved]
  - Dysmorphism [Not Recovered/Not Resolved]
